FAERS Safety Report 7310245-9 (Version None)
Quarter: 2011Q1

REPORT INFORMATION
  Report Type: 
  Country: None (occurrence: None)
  Receive Date: 20110224
  Receipt Date: 20110218
  Transmission Date: 20110831
  Serious: No
  Sender: FDA-Public Use
  Company Number: US-PFIZER INC-2011036605

PATIENT
  Sex: Female
  Weight: 61.7 kg

DRUGS (2)
  1. TYLENOL [Concomitant]
     Indication: RHEUMATOID ARTHRITIS
     Dosage: 650 MG, 2X/DAY
     Route: 048
  2. GABAPENTIN [Suspect]
     Indication: POST-TRAUMATIC PAIN
     Dosage: 100 MG, 1X/DAY
     Route: 048
     Dates: start: 20051101

REACTIONS (3)
  - FATIGUE [None]
  - PALPITATIONS [None]
  - MEMORY IMPAIRMENT [None]
